FAERS Safety Report 6426608-X (Version None)
Quarter: 2009Q4

REPORT INFORMATION
  Report Type: 
  Country: None (occurrence: None)
  Receive Date: 20091104
  Receipt Date: 20091030
  Transmission Date: 20100525
  Serious: Yes (Life-Threatening, Hospitalization)
  Sender: FDA-Public Use
  Company Number: GB-B.I. PHARMACEUTICALS,INC./RIDGEFIELD-2009-UK-00974UK

PATIENT
  Sex: Male

DRUGS (2)
  1. VIRAMUNE [Suspect]
     Indication: HIV TEST POSITIVE
     Dosage: 7 ANZ
     Route: 048
  2. KALETRA [Suspect]
     Dosage: 30 ANZ

REACTIONS (2)
  - OVERDOSE [None]
  - SUICIDE ATTEMPT [None]
